FAERS Safety Report 12517400 (Version 1)
Quarter: 2016Q2

REPORT INFORMATION
  Report Type: Spontaneous
  Country: CH (occurrence: CH)
  Receive Date: 20160630
  Receipt Date: 20160630
  Transmission Date: 20160815
  Serious: Yes (Death)
  Sender: FDA-Public Use
  Company Number: CH-CELGENEUS-CHE-2016063965

PATIENT
  Age: 69 Year
  Sex: Female

DRUGS (2)
  1. ABRAXANE [Suspect]
     Active Substance: PACLITAXEL
     Indication: INTRADUCTAL PROLIFERATIVE BREAST LESION
     Route: 041
     Dates: start: 201407, end: 201501
  2. KADCYLA [Suspect]
     Active Substance: ADO-TRASTUZUMAB EMTANSINE
     Indication: INTRADUCTAL PROLIFERATIVE BREAST LESION
     Route: 065
     Dates: start: 201407, end: 201501

REACTIONS (1)
  - Death [Fatal]

NARRATIVE: CASE EVENT DATE: 201502
